FAERS Safety Report 5659715-X (Version None)
Quarter: 2008Q1

REPORT INFORMATION
  Report Type: 
  Country: None (occurrence: None)
  Receive Date: 20080311
  Receipt Date: 20070625
  Transmission Date: 20080703
  Serious: No
  Sender: FDA-Public Use
  Company Number: US-BAYER-200712027BCC

PATIENT
  Age: 59 Year
  Sex: Female
  Weight: 68 kg

DRUGS (5)
  1. ALEVE [Suspect]
     Indication: PROCEDURAL PAIN
     Dosage: UNIT DOSE: 220 MG
     Route: 048
     Dates: start: 20070622
  2. ALEVE [Suspect]
     Dosage: TOTAL DAILY DOSE: 220 MG  UNIT DOSE: 220 MG
     Route: 048
     Dates: start: 20070623, end: 20070623
  3. ALEVE [Suspect]
     Dosage: TOTAL DAILY DOSE: 220 MG  UNIT DOSE: 220 MG
     Route: 048
     Dates: start: 20070625, end: 20070625
  4. VICODIN [Suspect]
     Indication: PROCEDURAL PAIN
     Dates: end: 20070623
  5. CORRECTOL STOOL SOFTNER [Suspect]
     Indication: DRUG USE FOR UNKNOWN INDICATION
     Dates: start: 20070623

REACTIONS (3)
  - ABDOMINAL PAIN [None]
  - COLD SWEAT [None]
  - NAUSEA [None]
